FAERS Safety Report 21623052 (Version 1)
Quarter: 2022Q4

REPORT INFORMATION
  Report Type: Spontaneous
  Country: US (occurrence: None)
  Receive Date: 20221118
  Receipt Date: 20221118
  Transmission Date: 20230112
  Serious: No
  Sender: FDA-Public Use
  Company Number: None

PATIENT
  Age: 79 Year
  Sex: Female
  Weight: 70.76 kg

DRUGS (21)
  1. LENALIDOMIDE [Suspect]
     Active Substance: LENALIDOMIDE
     Indication: Plasma cell myeloma
     Dosage: FREQUENCY : DAILY;?
     Route: 048
     Dates: start: 202205
  2. WARFARIN [Concomitant]
     Active Substance: WARFARIN
  3. VITAMIN D3 [Concomitant]
     Active Substance: CHOLECALCIFEROL
  4. REPATHA [Concomitant]
     Active Substance: EVOLOCUMAB
  5. PROCHORPERAZINE [Concomitant]
  6. ONDANSETRON [Concomitant]
     Active Substance: ONDANSETRON
  7. NITROGLYCERIN [Concomitant]
     Active Substance: NITROGLYCERIN
  8. MELATONIN [Concomitant]
     Active Substance: MELATONIN
  9. LOSARTAN [Concomitant]
     Active Substance: LOSARTAN
  10. LEVEMIR [Concomitant]
     Active Substance: INSULIN DETEMIR
  11. KEFLEX [Concomitant]
     Active Substance: CEPHALEXIN
  12. HYDRALANIE [Concomitant]
  13. GLIMEPIRIDE [Concomitant]
     Active Substance: GLIMEPIRIDE
  14. GEMFIBROZIL [Concomitant]
     Active Substance: GEMFIBROZIL
  15. CYCLOBENZAPRINE [Concomitant]
     Active Substance: CYCLOBENZAPRINE
  16. CRANBERRY [Concomitant]
     Active Substance: CRANBERRY
  17. CARVEDILOL [Concomitant]
     Active Substance: CARVEDILOL
  18. CALCIUM CARBONATE [Concomitant]
     Active Substance: CALCIUM CARBONATE
  19. BACLOFEN [Concomitant]
     Active Substance: BACLOFEN
  20. AMLODIPINE [Concomitant]
     Active Substance: AMLODIPINE BESYLATE
  21. ACYCLOVIR [Concomitant]
     Active Substance: ACYCLOVIR

REACTIONS (1)
  - Coronavirus test positive [None]

NARRATIVE: CASE EVENT DATE: 20221002
